FAERS Safety Report 21709446 (Version 4)
Quarter: 2023Q1

REPORT INFORMATION
  Report Type: Report from Study
  Country: US (occurrence: US)
  Receive Date: 20221210
  Receipt Date: 20230320
  Transmission Date: 20230418
  Serious: Yes (Hospitalization, Other)
  Sender: FDA-Public Use
  Company Number: US-TAKEDA-2022TUS081826

PATIENT
  Sex: Male

DRUGS (3)
  1. MARIBAVIR [Suspect]
     Active Substance: MARIBAVIR
     Indication: Cytomegalovirus infection
     Dosage: 400 MILLIGRAM, BID
     Route: 048
     Dates: start: 20221101, end: 20230202
  2. MARIBAVIR [Suspect]
     Active Substance: MARIBAVIR
     Indication: Post procedural infection
     Dosage: 400 MILLIGRAM, BID
     Route: 048
     Dates: start: 20221102
  3. MARIBAVIR [Suspect]
     Active Substance: MARIBAVIR
     Dosage: 400 MILLIGRAM, BID
     Route: 048
     Dates: start: 20230207

REACTIONS (3)
  - Bacterial infection [Recovered/Resolved]
  - Neuropathy peripheral [Unknown]
  - Pain [Unknown]
